FAERS Safety Report 12767522 (Version 2)
Quarter: 2016Q4

REPORT INFORMATION
  Report Type: Other
  Country: US (occurrence: US)
  Receive Date: 20160921
  Receipt Date: 20161026
  Transmission Date: 20170207
  Serious: Yes (Hospitalization, Other)
  Sender: FDA-Public Use
  Company Number: US-SHIRE-US201611914

PATIENT
  Age: 52 Year
  Sex: Male

DRUGS (1)
  1. GATTEX [Suspect]
     Active Substance: TEDUGLUTIDE\WATER
     Indication: SHORT-BOWEL SYNDROME
     Dosage: 4.5 MG, 1X/DAY:QD
     Route: 058
     Dates: start: 20160826

REACTIONS (8)
  - Hypersensitivity [Unknown]
  - Device related infection [Not Recovered/Not Resolved]
  - Pyrexia [Not Recovered/Not Resolved]
  - Swelling [Unknown]
  - Malaise [Unknown]
  - Rash pruritic [Not Recovered/Not Resolved]
  - Environmental exposure [Unknown]
  - Erythema [Unknown]

NARRATIVE: CASE EVENT DATE: 20160829
